FAERS Safety Report 17232923 (Version 1)
Quarter: 2020Q1

REPORT INFORMATION
  Report Type: Spontaneous
  Country: NL (occurrence: NL)
  Receive Date: 20200103
  Receipt Date: 20200103
  Transmission Date: 20200409
  Serious: Yes (Other)
  Sender: FDA-Public Use
  Company Number: NL-TEVA-2019-NL-1161074

PATIENT
  Age: 11 Week
  Sex: Female
  Weight: 60 kg

DRUGS (2)
  1. COTRIMOXAZOL [Suspect]
     Active Substance: SULFAMETHOXAZOLE\TRIMETHOPRIM
     Indication: BACTERIAL DISEASE CARRIER
     Dosage: 2X DAAGS 480 MG
     Dates: start: 20191002, end: 20191003
  2. RIFAMPICINE 600 MG [Concomitant]
     Dosage: 2X DAILY. 600 MG

REACTIONS (1)
  - Hallucination, visual [Recovered/Resolved]

NARRATIVE: CASE EVENT DATE: 20191002
